FAERS Safety Report 10131830 (Version 1)
Quarter: 2014Q2

REPORT INFORMATION
  Report Type: Spontaneous
  Country: US (occurrence: US)
  Receive Date: 20140428
  Receipt Date: 20140428
  Transmission Date: 20141212
  Serious: Yes (Other)
  Sender: FDA-Public Use
  Company Number: US-GLAXOSMITHKLINE-A1056772A

PATIENT
  Age: 75 Year
  Sex: Female

DRUGS (6)
  1. ONDANSETRON HYDROCHLORIDE [Suspect]
     Indication: NAUSEA
     Dosage: 4MG SEE DOSAGE TEXT
     Route: 048
     Dates: start: 20131206, end: 20140113
  2. FIORICET [Concomitant]
  3. BYSTOLIC [Concomitant]
  4. TYLENOL WITH CODEINE [Concomitant]
  5. BABY ASPIRIN [Concomitant]
  6. ACCUPRIL [Concomitant]

REACTIONS (6)
  - Urinary retention [Not Recovered/Not Resolved]
  - Headache [Not Recovered/Not Resolved]
  - Diarrhoea [Not Recovered/Not Resolved]
  - Anxiety [Not Recovered/Not Resolved]
  - Somnolence [Not Recovered/Not Resolved]
  - Drug ineffective [Unknown]
